FAERS Safety Report 9028044 (Version 3)
Quarter: 2013Q1

REPORT INFORMATION
  Report Type: Spontaneous
  Country: PT (occurrence: PT)
  Receive Date: 20130123
  Receipt Date: 20130125
  Transmission Date: 20140127
  Serious: Yes (Other)
  Sender: FDA-Public Use
  Company Number: PT-ROCHE-1181954

PATIENT
  Sex: Female

DRUGS (2)
  1. XELODA [Suspect]
     Indication: BREAST CANCER
     Route: 048
     Dates: start: 20121130
  2. TYVERB [Concomitant]
     Indication: BREAST CANCER
     Route: 065

REACTIONS (1)
  - Excessive granulation tissue [Not Recovered/Not Resolved]
